FAERS Safety Report 5513378-2 (Version None)
Quarter: 2007Q4

REPORT INFORMATION
  Report Type: 
  Country: None (occurrence: None)
  Receive Date: 20071112
  Receipt Date: 20071031
  Transmission Date: 20080405
  Serious: Yes (Other)
  Sender: FDA-Public Use
  Company Number: US-PFIZER INC-2007092300

PATIENT
  Sex: Female
  Weight: 52 kg

DRUGS (3)
  1. DILANTIN [Suspect]
     Indication: PARTIAL SEIZURES
     Route: 048
  2. RISPERDAL [Concomitant]
  3. FOSAMAX [Concomitant]

REACTIONS (9)
  - BLOOD PRESSURE SYSTOLIC INCREASED [None]
  - DYSPNOEA [None]
  - INSOMNIA [None]
  - NERVOUSNESS [None]
  - PALPITATIONS [None]
  - PANIC ATTACK [None]
  - PSYCHOMOTOR HYPERACTIVITY [None]
  - TINNITUS [None]
  - TREMOR [None]
